FAERS Safety Report 7233595-3 (Version None)
Quarter: 2011Q1

REPORT INFORMATION
  Report Type: 
  Country: None (occurrence: None)
  Receive Date: 20110119
  Receipt Date: 20100106
  Transmission Date: 20110831
  Serious: No
  Sender: FDA-Public Use
  Company Number: US-PFIZER INC-2010003417

PATIENT
  Sex: Female
  Weight: 65.8 kg

DRUGS (9)
  1. AROMASIN [Suspect]
     Indication: BREAST CANCER
     Dosage: 25 MG, 1X/DAY
     Route: 048
  2. DILTIAZEM [Concomitant]
     Indication: BLOOD PRESSURE ABNORMAL
     Dosage: UNK
  3. LISINOPRIL [Concomitant]
     Dosage: UNK
  4. ALPRAZOLAM [Concomitant]
     Dosage: UNK
  5. ADVAIR [Concomitant]
     Dosage: UNK
  6. PRAVASTATIN [Concomitant]
     Dosage: UNK
  7. PLAVIX [Concomitant]
     Dosage: ONE TABLET EVERY OTHER DAY
  8. ACETYLSALICYLIC ACID [Concomitant]
     Dosage: UNK
  9. ANASTROZOLE [Suspect]
     Indication: BREAST CANCER
     Dosage: UNK

REACTIONS (2)
  - PAIN [None]
  - ARTHRALGIA [None]
